FAERS Safety Report 19873545 (Version 1)
Quarter: 2021Q3

REPORT INFORMATION
  Report Type: Spontaneous
  Country: US (occurrence: US)
  Receive Date: 20210923
  Receipt Date: 20210923
  Transmission Date: 20211014
  Serious: Yes (Hospitalization, Other)
  Sender: FDA-Public Use
  Company Number: US-PFIZER INC-202101207368

PATIENT
  Age: 79 Year
  Sex: Male
  Weight: 75.3 kg

DRUGS (2)
  1. CHANTIX [Suspect]
     Active Substance: VARENICLINE TARTRATE
     Indication: SMOKING CESSATION THERAPY
     Dosage: 0.5 MG
     Dates: start: 202007, end: 202007
  2. CHANTIX [Suspect]
     Active Substance: VARENICLINE TARTRATE
     Dosage: 1 MG
     Dates: start: 202007, end: 202007

REACTIONS (5)
  - Malaise [Unknown]
  - Hallucination [Unknown]
  - Coma [Unknown]
  - Cerebrovascular accident [Unknown]
  - Recalled product administered [Unknown]

NARRATIVE: CASE EVENT DATE: 202007
